FAERS Safety Report 16240523 (Version 1)
Quarter: 2019Q2

REPORT INFORMATION
  Report Type: Spontaneous
  Country: US (occurrence: US)
  Receive Date: 20190425
  Receipt Date: 20190425
  Transmission Date: 20190711
  Serious: No
  Sender: FDA-Public Use
  Company Number: US-EGALET US INC-US-2019EGA000043

PATIENT
  Sex: Female

DRUGS (2)
  1. ARYMO ER [Suspect]
     Active Substance: MORPHINE SULFATE
     Indication: PAIN
  2. ARYMO ER [Suspect]
     Active Substance: MORPHINE SULFATE
     Indication: SPINAL DISORDER
     Dosage: UNK

REACTIONS (2)
  - Pain [Unknown]
  - Withdrawal syndrome [Unknown]
